FAERS Safety Report 10428474 (Version 1)
Quarter: 2014Q3

REPORT INFORMATION
  Report Type: Spontaneous
  Country: FR (occurrence: FR)
  Receive Date: 20140903
  Receipt Date: 20140903
  Transmission Date: 20150326
  Serious: Yes (Hospitalization)
  Sender: FDA-Public Use
  Company Number: FR-ALLERGAN-1418708US

PATIENT
  Age: 72 Year
  Sex: Female

DRUGS (4)
  1. OZURDEX [Suspect]
     Active Substance: DEXAMETHASONE
     Indication: RETINAL VEIN OCCLUSION
     Dosage: 700 ?G, SINGLE
     Route: 031
     Dates: start: 201403, end: 201403
  2. FLECAINE LP [Concomitant]
     Active Substance: FLECAINIDE
     Dosage: 150 MG, UNK
     Dates: start: 2012
  3. BUDESONIDE. [Concomitant]
     Active Substance: BUDESONIDE
     Dosage: UNK
     Dates: start: 1994
  4. OZURDEX [Suspect]
     Active Substance: DEXAMETHASONE
     Dosage: UNK

REACTIONS (1)
  - Viral uveitis [Recovering/Resolving]

NARRATIVE: CASE EVENT DATE: 20140611
